FAERS Safety Report 6662440-X (Version None)
Quarter: 2010Q1

REPORT INFORMATION
  Report Type: 
  Country: None (occurrence: None)
  Receive Date: 20100329
  Receipt Date: 20100312
  Transmission Date: 20100710
  Serious: Yes (Other)
  Sender: FDA-Public Use
  Company Number: AUR-APL-2010-00856

PATIENT
  Age: 53 Year
  Sex: Male
  Weight: 104.31 kg

DRUGS (21)
  1. FINASTERIDE [Suspect]
     Indication: OEDEMA
     Dosage: 5MG, DAILY, ORAL
     Route: 048
     Dates: start: 20080801
  2. METFORMIN HCL [Suspect]
     Indication: DIABETES MELLITUS
     Dosage: ORAL
     Route: 048
     Dates: end: 20090101
  3. SIMVASTATIN [Suspect]
     Indication: BLOOD CHOLESTEROL INCREASED
     Dosage: 40MG - DAILY - ORAL
     Route: 048
  4. ALLOPURINOL [Suspect]
     Indication: HEPATIC ENZYME INCREASED
     Dosage: ORAL
     Route: 048
     Dates: start: 20040201
  5. ACTOS [Suspect]
     Indication: DIABETES MELLITUS
     Dosage: 7.5-15MG - DAILY - ORAL
     Route: 048
     Dates: start: 20090108
  6. ALBUTEROL [Suspect]
     Indication: COUGH
     Dosage: 4MG - TID - ORAL
     Route: 048
     Dates: start: 20040201
  7. ALBUTEROL [Suspect]
     Indication: RESPIRATORY TRACT INFECTION VIRAL
     Dosage: 4MG - TID - ORAL
     Route: 048
     Dates: start: 20040201
  8. ALBUTEROL [Suspect]
     Indication: RHINITIS
     Dosage: 4MG - TID - ORAL
     Route: 048
     Dates: start: 20040201
  9. COLCHICINE [Suspect]
     Indication: ALANINE AMINOTRANSFERASE INCREASED
     Dosage: 0.6MG - ORAL
     Route: 048
     Dates: start: 20020301
  10. IPRATROPIUM BROMIDE [Suspect]
  11. LORATADINE [Suspect]
     Dosage: 10MG - DAILY - ORAL
     Route: 048
     Dates: start: 20081101
  12. NASAREL [Suspect]
     Indication: OEDEMA PERIPHERAL
     Dates: start: 20031201, end: 20061101
  13. OMEPRAZOLE [Suspect]
     Indication: ALANINE AMINOTRANSFERASE INCREASED
     Dosage: 20MG - BID - ORAL
     Route: 048
     Dates: start: 20040701
  14. OMEPRAZOLE [Suspect]
     Indication: OEDEMA PERIPHERAL
     Dosage: 20MG - BID - ORAL
     Route: 048
     Dates: start: 20040701
  15. OXYCODONE [Suspect]
     Dosage: 5MG
     Dates: start: 20100301
  16. PENTOXIFYLLINE [Suspect]
     Indication: HEPATIC ENZYME INCREASED
     Dosage: 400MG - BID - ORAL
     Route: 048
     Dates: start: 20020501
  17. PENTOXIFYLLINE [Suspect]
     Indication: INFLUENZA
     Dosage: 400MG - BID - ORAL
     Route: 048
     Dates: start: 20020501
  18. PENTOXIFYLLINE [Suspect]
     Indication: OEDEMA
     Dosage: 400MG - BID - ORAL
     Route: 048
     Dates: start: 20020501
  19. RANITIDINE HCL [Suspect]
     Indication: MYALGIA
     Dosage: 300MG - TID - ORAL
     Route: 048
     Dates: start: 20030901
  20. LASIX [Concomitant]
  21. METFORMIN HCL [Concomitant]

REACTIONS (8)
  - BLOOD GLUCOSE INCREASED [None]
  - DRUG EFFECT DECREASED [None]
  - GINGIVAL DISORDER [None]
  - JOINT SWELLING [None]
  - NASOPHARYNGITIS [None]
  - RESPIRATORY TRACT INFECTION VIRAL [None]
  - SINUS DISORDER [None]
  - TREATMENT NONCOMPLIANCE [None]
